FAERS Safety Report 7307610-2 (Version None)
Quarter: 2011Q1

REPORT INFORMATION
  Report Type: 
  Country: None (occurrence: None)
  Receive Date: 20110223
  Receipt Date: 20110223
  Transmission Date: 20110831
  Serious: Yes (Other)
  Sender: FDA-Public Use
  Company Number: None

PATIENT
  Age: 11 Year
  Sex: Male
  Weight: 44.9061 kg

DRUGS (3)
  1. UTILET STERILE ALCOHOL SWABS 70% V/V ISOPROPYL ALCOHOL BOCA MEDICAL PR [Suspect]
     Indication: THERAPEUTIC SKIN CARE TOPICAL
     Dosage: AS NEEDED FOR GLUCOSE TESTING OCCASIONALLY CUTANEOUS
     Route: 003
     Dates: start: 20101101, end: 20110221
  2. INSULIN [Concomitant]
  3. UTILET STERILE ALCOHOL SWABS 70% V/V ISOPROPYL ALCOHOL BOCA MEDICAL PR [Suspect]

REACTIONS (2)
  - RASH MACULO-PAPULAR [None]
  - PRODUCT QUALITY ISSUE [None]
